FAERS Safety Report 8500256-X (Version None)
Quarter: 2012Q3

REPORT INFORMATION
  Report Type: 
  Country: None (occurrence: None)
  Receive Date: 20120710
  Receipt Date: 20120703
  Transmission Date: 20120928
  Serious: Yes (Hospitalization, Other)
  Sender: FDA-Public Use
  Company Number: GB-SANOFI-AVENTIS-2012SA047385

PATIENT
  Age: 64 Year
  Sex: Male

DRUGS (9)
  1. FLUOROURACIL [Suspect]
     Dosage: THE PATIENT RECEIVED 3 CYCLES.
     Route: 065
  2. OXALIPLATIN [Suspect]
     Dosage: THE PATIENT RECEIVED 9 CYCLES
     Route: 065
  3. OXALIPLATIN [Suspect]
     Dosage: THE PATIENT RECEIVED 3 CYCLES
     Route: 065
  4. IRINOTECAN HCL [Suspect]
     Dosage: THE PATIENT RECEIVED 6 CYCLES OVER A 2 MONTH PERIOD
     Route: 065
  5. NEUPOGEN [Concomitant]
     Dosage: THE PATIENT RECEIVED 6 CYCLES OVER A 2 MONTH PERIOD
     Route: 065
  6. FLUOROURACIL [Suspect]
     Dosage: THE PATIENT RECEIVED 6 CYCLES OVER A 2 MONTH PERIOD
     Route: 065
  7. FLUOROURACIL [Suspect]
     Dosage: THE PATIENT RECEIVED 9 CYCLES
     Route: 065
  8. OXALIPLATIN [Suspect]
     Dosage: THE PATIENT RECEIVED 6 CYCLES OVER 2 MONTH PERIOD
     Route: 065
  9. THERAPEUTIC RADIOPHARMACEUTICALS [Concomitant]
     Route: 065

REACTIONS (5)
  - POST PROCEDURAL HAEMORRHAGE [None]
  - BONE MARROW FAILURE [None]
  - MYELODYSPLASTIC SYNDROME [None]
  - PORTAL HYPERTENSION [None]
  - THROMBOCYTOPENIA [None]
